FAERS Safety Report 9162534 (Version 1)
Quarter: 2013Q1

REPORT INFORMATION
  Report Type: Spontaneous
  Country: US (occurrence: None)
  Receive Date: 20130222
  Receipt Date: 20130222
  Transmission Date: 20140127
  Serious: Yes (Hospitalization, Other)
  Sender: FDA-Public Use
  Company Number: 2013AP002971

PATIENT
  Age: 44 Year
  Sex: Female

DRUGS (3)
  1. TAMOXIFEN [Suspect]
     Indication: BREAST CANCER
  2. HEPARIN [Suspect]
     Indication: BUDD-CHIARI SYNDROME
     Route: 042
  3. CEFTRIAXONE [Concomitant]

REACTIONS (11)
  - Abdominal pain [None]
  - Waist circumference increased [None]
  - Oedema peripheral [None]
  - Orthopnoea [None]
  - Splenomegaly [None]
  - Hepatomegaly [None]
  - Peritoneal fluid analysis abnormal [None]
  - Escherichia test positive [None]
  - Budd-Chiari syndrome [None]
  - Heparin-induced thrombocytopenia [None]
  - Heparin-induced thrombocytopenia [None]
